FAERS Safety Report 9380438 (Version 1)
Quarter: 2013Q2

REPORT INFORMATION
  Report Type: Spontaneous
  Country: IT (occurrence: None)
  Receive Date: 20130628
  Receipt Date: 20130628
  Transmission Date: 20140414
  Serious: Yes (Hospitalization)
  Sender: FDA-Public Use
  Company Number: 2013AP006213

PATIENT
  Age: 83 Year
  Sex: Male

DRUGS (8)
  1. ZOLPIDEM TARTRATE (ZOLPIDEM TARTRATE) [Suspect]
     Indication: INTENTIONAL SELF-INJURY
     Route: 048
     Dates: start: 20130610, end: 20130610
  2. ALPRAZOLAM (ALPRAZOLAM) [Suspect]
     Indication: INTENTIONAL SELF-INJURY
     Route: 048
     Dates: start: 20130610, end: 20130610
  3. CITICOLINE (CITICOLINE0 [Concomitant]
  4. REMERON (MIRTAZAPINE) [Concomitant]
  5. ALIFLUS (SERETIDE) [Concomitant]
  6. VENTOLIN / 00139501/ (SALBUTAMOL) [Concomitant]
  7. DEBRIDAT /00465202/ (TRIMEBUTINE MALEATE) [Concomitant]
  8. SPIRIVA (TIOTROPIUM BROMIDE) [Concomitant]

REACTIONS (4)
  - Sopor [None]
  - Face injury [None]
  - Intentional self-injury [None]
  - Wound [None]
